FAERS Safety Report 4862303-6 (Version None)
Quarter: 2005Q4

REPORT INFORMATION
  Report Type: 
  Country: None (occurrence: None)
  Receive Date: 20051221
  Receipt Date: 20051212
  Transmission Date: 20060501
  Serious: Yes (Hospitalization)
  Sender: FDA-Public Use
  Company Number: GB-AVENTIS-200521008GDDC

PATIENT
  Age: 66 Year
  Sex: Male

DRUGS (17)
  1. PREDNISOLONE [Suspect]
     Indication: POLYMYOSITIS
     Route: 048
     Dates: start: 20040218
  2. ARAVA [Suspect]
     Indication: POLYMYOSITIS
     Route: 048
     Dates: start: 20050401, end: 20051125
  3. ADCAL [Concomitant]
  4. TEMAZEPAM [Concomitant]
     Route: 048
  5. ORAMORPH SR [Concomitant]
  6. AMITRIPTYLINE [Concomitant]
  7. MS CONTIN [Concomitant]
  8. MOVICOL [Concomitant]
  9. SALMETEROL [Concomitant]
     Dosage: DOSE: 25 MCG (2 PUFFS/DAY)
     Route: 055
  10. SALBUTAMOL [Concomitant]
     Route: 055
  11. PARACETAMOL [Concomitant]
  12. SIMVASTATIN [Concomitant]
  13. GLIPIZIDE [Concomitant]
  14. COMBIVENT [Concomitant]
     Route: 055
  15. OMEPRAZOLE [Concomitant]
  16. CALCITRIOL [Concomitant]
  17. HYOSCINE HBR HYT [Concomitant]
     Dosage: DOSE: 10 MG MANE

REACTIONS (3)
  - ABDOMINAL PAIN [None]
  - GASTROINTESTINAL HAEMORRHAGE [None]
  - HAEMATEMESIS [None]
